FAERS Safety Report 7741510-9 (Version None)
Quarter: 2011Q3

REPORT INFORMATION
  Report Type: 
  Country: None (occurrence: None)
  Receive Date: 20110909
  Receipt Date: 20110831
  Transmission Date: 20111222
  Serious: Yes (Other)
  Sender: FDA-Public Use
  Company Number: CN-MERCK-1108CHN00239

PATIENT
  Age: 82 Year
  Sex: Female

DRUGS (7)
  1. DIAZEPAM [Concomitant]
     Indication: EPILEPSY
     Route: 041
     Dates: start: 20101009
  2. PRIMAXIN [Suspect]
     Route: 042
     Dates: start: 20101005, end: 20101009
  3. VALPROATE SODIUM [Concomitant]
     Indication: EPILEPSY
     Route: 048
     Dates: start: 20101009
  4. CEFUROXIME [Concomitant]
     Route: 065
     Dates: start: 20100823
  5. PHENOBARBITAL SODIUM [Concomitant]
     Indication: EPILEPSY
     Route: 030
     Dates: start: 20101009
  6. AZITHROMYCIN [Concomitant]
     Route: 065
     Dates: start: 20100823
  7. CEFOPERAZONE SODIUM AND SULBACTAM SODIUM [Concomitant]
     Route: 065
     Dates: start: 20100823

REACTIONS (1)
  - EPILEPSY [None]
